FAERS Safety Report 23425895 (Version 1)
Quarter: 2024Q1

REPORT INFORMATION
  Report Type: Report from Study
  Country: US (occurrence: US)
  Receive Date: 20240122
  Receipt Date: 20240122
  Transmission Date: 20240410
  Serious: Yes (Hospitalization)
  Sender: FDA-Public Use
  Company Number: US-ABBVIE-5595643

PATIENT
  Sex: Female

DRUGS (1)
  1. HUMIRA [Suspect]
     Active Substance: ADALIMUMAB
     Indication: Rheumatoid arthritis
     Dosage: FORM STRENGTH UNITS: 40 MILLIGRAM?CITRATE FREE
     Route: 058
     Dates: start: 20230119

REACTIONS (3)
  - Respiratory disorder [Not Recovered/Not Resolved]
  - Asthma [Not Recovered/Not Resolved]
  - Feeling abnormal [Unknown]
